FAERS Safety Report 9245095 (Version 1)
Quarter: 2013Q2

REPORT INFORMATION
  Report Type: Spontaneous
  Country: BR (occurrence: BR)
  Receive Date: 20130422
  Receipt Date: 20130422
  Transmission Date: 20140414
  Serious: Yes (Other)
  Sender: FDA-Public Use
  Company Number: PHHY2013BR038367

PATIENT
  Sex: Female

DRUGS (1)
  1. ESTRAGEST TTS [Suspect]
     Dosage: UNK UKN, UNK

REACTIONS (1)
  - Haemorrhage [Unknown]
